FAERS Safety Report 5524365-2 (Version None)
Quarter: 2007Q4

REPORT INFORMATION
  Report Type: 
  Country: None (occurrence: None)
  Receive Date: 20071121
  Receipt Date: 20071113
  Transmission Date: 20080405
  Serious: Yes (Other)
  Sender: FDA-Public Use
  Company Number: US-PFIZER INC-2007096080

PATIENT
  Sex: Female
  Weight: 86.2 kg

DRUGS (2)
  1. DILANTIN [Suspect]
     Indication: MIGRAINE
     Route: 048
     Dates: start: 19511001, end: 20070101
  2. DILANTIN [Suspect]

REACTIONS (18)
  - ASTHENIA [None]
  - DIPLOPIA [None]
  - DYSPNOEA [None]
  - EMOTIONAL DISORDER [None]
  - FEAR OF FALLING [None]
  - GINGIVAL PAIN [None]
  - JOINT SWELLING [None]
  - LIP PAIN [None]
  - MEMORY IMPAIRMENT [None]
  - NASAL DISCOMFORT [None]
  - NASAL OEDEMA [None]
  - OEDEMA PERIPHERAL [None]
  - ORAL PAIN [None]
  - PHARYNGEAL OEDEMA [None]
  - PHOTOPHOBIA [None]
  - SOMNOLENCE [None]
  - THROAT IRRITATION [None]
  - TREMOR [None]
